FAERS Safety Report 8231967-1 (Version None)
Quarter: 2012Q1

REPORT INFORMATION
  Report Type: 
  Country: None (occurrence: None)
  Receive Date: 20120323
  Receipt Date: 20120308
  Transmission Date: 20120608
  Serious: Yes (Hospitalization)
  Sender: FDA-Public Use
  Company Number: FR-ROCHE-1047095

PATIENT
  Sex: Male
  Weight: 65 kg

DRUGS (5)
  1. CISPLATIN [Suspect]
     Indication: MANTLE CELL LYMPHOMA
     Dates: start: 20120131, end: 20120131
  2. CYTARABINE [Suspect]
     Indication: MANTLE CELL LYMPHOMA
     Dosage: POWDER AND SOLVENT FOR SOLUTION FOR INFUSION. ACCORDING TO THE PROTOCOLE ON DAYS 1-2/CYCLE, SO PROBA
     Dates: start: 20120201, end: 20120201
  3. DEXAMETHASONE [Suspect]
     Indication: MANTLE CELL LYMPHOMA
     Dates: start: 20120131, end: 20120131
  4. NEULASTA [Suspect]
     Indication: MANTLE CELL LYMPHOMA
     Route: 058
     Dates: start: 20120206, end: 20120206
  5. MABTHERA [Suspect]
     Indication: MANTLE CELL LYMPHOMA
     Route: 041
     Dates: start: 20120203, end: 20120203

REACTIONS (3)
  - PURPURA [None]
  - EXTREMITY NECROSIS [None]
  - BLISTER [None]
